FAERS Safety Report 25791092 (Version 1)
Quarter: 2025Q3

REPORT INFORMATION
  Report Type: Report from Study
  Country: EU (occurrence: EU)
  Receive Date: 20250911
  Receipt Date: 20250911
  Transmission Date: 20251020
  Serious: Yes (Other)
  Sender: ROCHE
  Company Number: EU-ROCHE-10000378326

PATIENT

DRUGS (35)
  1. ATEZOLIZUMAB [Suspect]
     Active Substance: ATEZOLIZUMAB
     Indication: Malignant melanoma
     Route: 065
  2. ATEZOLIZUMAB [Suspect]
     Active Substance: ATEZOLIZUMAB
     Indication: Squamous cell carcinoma of skin
  3. ATEZOLIZUMAB [Suspect]
     Active Substance: ATEZOLIZUMAB
     Indication: Neuroendocrine carcinoma of the skin
  4. ATEZOLIZUMAB [Suspect]
     Active Substance: ATEZOLIZUMAB
     Indication: Lung neoplasm malignant
  5. ATEZOLIZUMAB [Suspect]
     Active Substance: ATEZOLIZUMAB
     Indication: Gastric cancer
  6. NELVUTAMIG [Suspect]
     Active Substance: NELVUTAMIG
     Indication: Malignant melanoma
     Route: 065
  7. NELVUTAMIG [Suspect]
     Active Substance: NELVUTAMIG
     Indication: Squamous cell carcinoma of skin
  8. NELVUTAMIG [Suspect]
     Active Substance: NELVUTAMIG
     Indication: Neuroendocrine carcinoma of the skin
  9. NELVUTAMIG [Suspect]
     Active Substance: NELVUTAMIG
     Indication: Lung neoplasm malignant
  10. NELVUTAMIG [Suspect]
     Active Substance: NELVUTAMIG
     Indication: Gastric cancer
  11. NIVOLUMAB [Suspect]
     Active Substance: NIVOLUMAB
     Indication: Malignant melanoma
     Route: 065
  12. NIVOLUMAB [Suspect]
     Active Substance: NIVOLUMAB
     Indication: Squamous cell carcinoma of skin
  13. NIVOLUMAB [Suspect]
     Active Substance: NIVOLUMAB
     Indication: Neuroendocrine carcinoma of the skin
  14. NIVOLUMAB [Suspect]
     Active Substance: NIVOLUMAB
     Indication: Lung neoplasm malignant
  15. NIVOLUMAB [Suspect]
     Active Substance: NIVOLUMAB
     Indication: Gastric cancer
  16. PEMBROLIZUMAB [Suspect]
     Active Substance: PEMBROLIZUMAB
     Indication: Malignant melanoma
     Route: 065
  17. PEMBROLIZUMAB [Suspect]
     Active Substance: PEMBROLIZUMAB
     Indication: Squamous cell carcinoma of skin
  18. PEMBROLIZUMAB [Suspect]
     Active Substance: PEMBROLIZUMAB
     Indication: Neuroendocrine carcinoma of the skin
  19. PEMBROLIZUMAB [Suspect]
     Active Substance: PEMBROLIZUMAB
     Indication: Lung neoplasm malignant
  20. PEMBROLIZUMAB [Suspect]
     Active Substance: PEMBROLIZUMAB
     Indication: Gastric cancer
  21. CEMIPLIMAB [Suspect]
     Active Substance: CEMIPLIMAB
     Indication: Malignant melanoma
     Route: 065
  22. CEMIPLIMAB [Suspect]
     Active Substance: CEMIPLIMAB
     Indication: Squamous cell carcinoma of skin
  23. CEMIPLIMAB [Suspect]
     Active Substance: CEMIPLIMAB
     Indication: Neuroendocrine carcinoma of the skin
  24. CEMIPLIMAB [Suspect]
     Active Substance: CEMIPLIMAB
     Indication: Lung neoplasm malignant
  25. CEMIPLIMAB [Suspect]
     Active Substance: CEMIPLIMAB
     Indication: Gastric cancer
  26. AVELUMAB [Suspect]
     Active Substance: AVELUMAB
     Indication: Malignant melanoma
     Route: 065
  27. AVELUMAB [Suspect]
     Active Substance: AVELUMAB
     Indication: Squamous cell carcinoma of skin
  28. AVELUMAB [Suspect]
     Active Substance: AVELUMAB
     Indication: Neuroendocrine carcinoma of the skin
  29. AVELUMAB [Suspect]
     Active Substance: AVELUMAB
     Indication: Lung neoplasm malignant
  30. AVELUMAB [Suspect]
     Active Substance: AVELUMAB
     Indication: Gastric cancer
  31. DURVALUMAB [Suspect]
     Active Substance: DURVALUMAB
     Indication: Malignant melanoma
     Route: 065
  32. DURVALUMAB [Suspect]
     Active Substance: DURVALUMAB
     Indication: Squamous cell carcinoma of skin
  33. DURVALUMAB [Suspect]
     Active Substance: DURVALUMAB
     Indication: Neuroendocrine carcinoma of the skin
  34. DURVALUMAB [Suspect]
     Active Substance: DURVALUMAB
     Indication: Lung neoplasm malignant
  35. DURVALUMAB [Suspect]
     Active Substance: DURVALUMAB
     Indication: Gastric cancer

REACTIONS (8)
  - Pruritus [Unknown]
  - Dermatosis [Unknown]
  - Lichenoid keratosis [Unknown]
  - Psoriasis [Unknown]
  - Vitiligo [Unknown]
  - Melanocytic naevus [Unknown]
  - Achromotrichia acquired [Unknown]
  - Pemphigoid [Unknown]
